FAERS Safety Report 8758500 (Version 1)
Quarter: 2012Q4

REPORT INFORMATION
  Report Type: 
  Country: BR (occurrence: BR)
  Receive Date: 20120829
  Receipt Date: 20120829
  Transmission Date: 20130627
  Serious: Yes (Death, Hospitalization)
  Sender: FDA-Public Use
  Company Number: PHHY2012BR073750

PATIENT
  Age: 35 Year
  Sex: Female

DRUGS (2)
  1. FORMOTEROL [Suspect]
     Indication: ASTHMA
     Dosage: 24 ug, QD
  2. CICLESONIDE [Suspect]
     Indication: ASTHMA
     Dosage: 640 ug, QD

REACTIONS (3)
  - Foetal death [Fatal]
  - Asthma [Unknown]
  - Exposure during pregnancy [Unknown]
